FAERS Safety Report 13914945 (Version 1)
Quarter: 2017Q3

REPORT INFORMATION
  Report Type: Spontaneous
  Country: US (occurrence: US)
  Receive Date: 20170828
  Receipt Date: 20170828
  Transmission Date: 20171127
  Serious: No
  Sender: FDA-Public Use
  Company Number: None

PATIENT
  Age: 39 Year
  Sex: Female
  Weight: 63.45 kg

DRUGS (3)
  1. SUBSTITUTED FOR PROZAC PULVULE PLIVA-647 [Suspect]
     Active Substance: FLUOXETINE HYDROCHLORIDE
     Indication: POSTURAL ORTHOSTATIC TACHYCARDIA SYNDROME
     Dosage: ?          QUANTITY:30 CAPSULE(S);?
     Route: 048
     Dates: start: 20170824, end: 20170828
  2. PROZAC [Concomitant]
     Active Substance: FLUOXETINE HYDROCHLORIDE
  3. XANAX [Concomitant]
     Active Substance: ALPRAZOLAM

REACTIONS (7)
  - Drug effect decreased [None]
  - Irritability [None]
  - Product substitution issue [None]
  - Fatigue [None]
  - Nightmare [None]
  - Emotional disorder [None]
  - Depression [None]

NARRATIVE: CASE EVENT DATE: 20170827
